FAERS Safety Report 14387108 (Version 1)
Quarter: 2018Q1

REPORT INFORMATION
  Report Type: Spontaneous
  Country: US (occurrence: US)
  Receive Date: 20180115
  Receipt Date: 20180115
  Transmission Date: 20180509
  Serious: Yes (Other)
  Sender: FDA-Public Use
  Company Number: US-SA-2017SA178379

PATIENT
  Age: 44 Year
  Sex: Female
  Weight: 70.31 kg

DRUGS (6)
  1. HERCEPTIN [Concomitant]
     Active Substance: TRASTUZUMAB
     Dosage: DOSE: 149
     Route: 065
     Dates: start: 20061212, end: 20061212
  2. LISINOPRIL. [Concomitant]
     Active Substance: LISINOPRIL
  3. DARBEPOETIN ALFA [Concomitant]
     Active Substance: DARBEPOETIN ALFA
     Dosage: DOSE: 200
     Route: 065
     Dates: start: 20161219, end: 20161219
  4. TAXOTERE [Suspect]
     Active Substance: DOCETAXEL
     Indication: BREAST CANCER FEMALE
     Route: 051
     Dates: start: 20061205, end: 20061205
  5. TAXOTERE [Suspect]
     Active Substance: DOCETAXEL
     Indication: BREAST CANCER FEMALE
     Route: 051
     Dates: start: 20070314, end: 20070314
  6. HERCEPTIN [Concomitant]
     Active Substance: TRASTUZUMAB
     Dosage: DOSE: 149
     Route: 065
     Dates: start: 20061219, end: 20061219

REACTIONS (2)
  - Alopecia [Not Recovered/Not Resolved]
  - Psychological trauma [Unknown]

NARRATIVE: CASE EVENT DATE: 20070101
